FAERS Safety Report 9783612 (Version 1)
Quarter: 2013Q4

REPORT INFORMATION
  Report Type: Spontaneous
  Country: CH (occurrence: CH)
  Receive Date: 20131226
  Receipt Date: 20131226
  Transmission Date: 20140711
  Serious: Yes (Hospitalization)
  Sender: FDA-Public Use
  Company Number: CH-BAYER-2013-155511

PATIENT
  Age: 92 Year
  Sex: 0

DRUGS (8)
  1. XARELTO [Suspect]
     Indication: ATRIAL FIBRILLATION
     Dosage: 10 MG, QD
     Route: 048
     Dates: start: 201208, end: 201211
  2. XARELTO [Suspect]
     Indication: CEREBROVASCULAR ACCIDENT PROPHYLAXIS
     Dosage: 20 MG, UNK
     Dates: start: 201211
  3. XARELTO [Suspect]
     Indication: ATRIAL FIBRILLATION
     Dosage: 10 MG, UNK
     Dates: start: 20131013
  4. XARELTO [Suspect]
     Indication: ATRIAL FIBRILLATION
     Dosage: 15 MG, UNK
     Dates: start: 201310
  5. CIPROXIN [Suspect]
     Indication: URINARY TRACT INFECTION
     Dosage: 250 MG, BID
     Route: 048
     Dates: start: 20131008, end: 20131014
  6. BILOL [Concomitant]
     Route: 048
  7. TOREM [Concomitant]
  8. ANXIOLIT [Concomitant]

REACTIONS (4)
  - Drug ineffective [Recovered/Resolved]
  - Prescribed underdose [Recovered/Resolved]
  - Epilepsy [Recovered/Resolved]
  - Cerebrovascular accident [Recovering/Resolving]
